FAERS Safety Report 7820756-5 (Version None)
Quarter: 2011Q4

REPORT INFORMATION
  Report Type: 
  Country: None (occurrence: None)
  Receive Date: 20111018
  Receipt Date: 20111012
  Transmission Date: 20120403
  Serious: Yes (Hospitalization)
  Sender: FDA-Public Use
  Company Number: JP-B.I. PHARMACEUTICALS,INC./RIDGEFIELD-2011-BP-24173NB

PATIENT
  Age: 79 Year
  Sex: Male
  Weight: 55 kg

DRUGS (5)
  1. FOIPAN [Concomitant]
     Dosage: 600 MG
     Route: 048
  2. URSO 250 [Concomitant]
     Indication: BILE DUCT STONE
     Dosage: 600 MG
     Route: 048
  3. FAMOTIDINE [Concomitant]
     Dosage: 20 MG
     Route: 048
  4. PRADAXA [Suspect]
     Indication: ATRIAL FIBRILLATION
     Dosage: 220 MG
     Route: 048
     Dates: start: 20111006, end: 20111012
  5. ALLOPURINOL [Concomitant]
     Dosage: 100 MG
     Route: 048

REACTIONS (1)
  - ACTIVATED PARTIAL THROMBOPLASTIN TIME PROLONGED [None]
